FAERS Safety Report 4580062-1 (Version None)
Quarter: 2005Q1

REPORT INFORMATION
  Report Type: 
  Country: None (occurrence: None)
  Receive Date: 20050214
  Receipt Date: 20030605
  Transmission Date: 20050727
  Serious: Yes (Hospitalization, Other)
  Sender: FDA-Public Use
  Company Number: US-MERCK-0306USA00715

PATIENT
  Age: 47 Year
  Sex: Female

DRUGS (4)
  1. VIOXX [Suspect]
     Route: 048
     Dates: start: 19991201
  2. VIOXX [Suspect]
     Route: 048
  3. SERZONE [Concomitant]
     Route: 065
  4. FIORINAL [Concomitant]
     Route: 065

REACTIONS (59)
  - ABDOMINAL PAIN UPPER [None]
  - ACUTE MYOCARDIAL INFARCTION [None]
  - ADVERSE EVENT [None]
  - ALANINE AMINOTRANSFERASE INCREASED [None]
  - ANAEMIA [None]
  - ANGINA PECTORIS [None]
  - ANGINA UNSTABLE [None]
  - ASPARTATE AMINOTRANSFERASE INCREASED [None]
  - BILIARY TRACT DISORDER [None]
  - BLOOD ALKALINE PHOSPHATASE INCREASED [None]
  - BLOOD PH INCREASED [None]
  - BLOOD PRESSURE DIASTOLIC DECREASED [None]
  - CARDIAC FAILURE [None]
  - CARDIOMEGALY [None]
  - CEREBROVASCULAR ACCIDENT [None]
  - CHEST PAIN [None]
  - CONVULSION [None]
  - CORONARY ARTERY DISEASE [None]
  - DIARRHOEA [None]
  - DILATATION ATRIAL [None]
  - DRUG INEFFECTIVE [None]
  - DYSPEPSIA [None]
  - FIBROMYALGIA [None]
  - GAMMA-GLUTAMYLTRANSFERASE INCREASED [None]
  - GASTRITIS [None]
  - GASTRITIS EROSIVE [None]
  - HAEMODIALYSIS [None]
  - HAEMOGLOBIN INCREASED [None]
  - HAEMORRHOIDS [None]
  - HYPERTENSION [None]
  - HYPOALBUMINAEMIA [None]
  - HYPOXIA [None]
  - INFECTIOUS MONONUCLEOSIS [None]
  - INTERVERTEBRAL DISC DEGENERATION [None]
  - LEFT VENTRICULAR END-DIASTOLIC PRESSURE INCREASED [None]
  - LIVER DISORDER [None]
  - LUNG INFILTRATION [None]
  - MIGRAINE [None]
  - MITRAL VALVE INCOMPETENCE [None]
  - MULTI-ORGAN DISORDER [None]
  - MUSCLE SPASMS [None]
  - PANCREATITIS [None]
  - PLATELET COUNT DECREASED [None]
  - PNEUMONIA [None]
  - PNEUMONITIS [None]
  - PULMONARY FIBROSIS [None]
  - PULMONARY OEDEMA [None]
  - PYODERMA GANGRENOSUM [None]
  - RENAL FAILURE [None]
  - RENAL FAILURE ACUTE [None]
  - RENAL TUBULAR NECROSIS [None]
  - RESPIRATORY DISORDER [None]
  - RESPIRATORY DISTRESS [None]
  - RESPIRATORY FAILURE [None]
  - SKIN ULCER [None]
  - SPONDYLOLISTHESIS [None]
  - THERAPEUTIC RESPONSE DECREASED [None]
  - VASCULITIS [None]
  - WHITE BLOOD CELL COUNT INCREASED [None]
